FAERS Safety Report 8829189 (Version 2)
Quarter: 2013Q1

REPORT INFORMATION
  Report Type: Spontaneous
  Country: BE (occurrence: None)
  Receive Date: 20121004
  Receipt Date: 20121019
  Transmission Date: 20140127
  Serious: Yes (Other)
  Sender: FDA-Public Use
  Company Number: AUR-APL-2012-04247

PATIENT
  Age: 60 Year
  Sex: Male

DRUGS (10)
  1. ZIDOVUDINE [Suspect]
     Indication: ANTIRETROVIRAL THERAPY
  2. LAMIVUDINE [Suspect]
     Indication: ANTIRETROVIRAL THERAPY
  3. NELFINAVIR [Suspect]
     Indication: ANTIRETROVIRAL THERAPY
  4. SAQUINAVIR [Suspect]
     Indication: ANTIRETROVIRAL THERAPY
  5. TENOFOVIR [Suspect]
     Indication: ANTIRETROVIRAL THERAPY
  6. EMTRICITABINE [Suspect]
     Indication: ANTIRETROVIRAL THERAPY
  7. ATAZANAVIR [Suspect]
     Indication: ANTIRETROVIRAL THERAPY
  8. SALMETEROL XINAFOATE + FLUTICASONE PROPIONATE [Suspect]
     Indication: CHRONIC OBSTRUCTIVE PULMONARY DISEASE
     Route: 055
  9. RITONAVIR [Suspect]
     Indication: ANTIRETROVIRAL THERAPY
  10. BUDESONIDE/FORMOTEROL [Suspect]
     Indication: PRODUCT USED FOR UNKNOWN INDICATION

REACTIONS (7)
  - Gynaecomastia [None]
  - Face oedema [None]
  - Herpes simplex [None]
  - Diarrhoea [None]
  - Blood cortisol decreased [None]
  - Cushing^s syndrome [None]
  - Blood corticotrophin decreased [None]
